FAERS Safety Report 7686945-8 (Version None)
Quarter: 2011Q3

REPORT INFORMATION
  Report Type: 
  Country: None (occurrence: None)
  Receive Date: 20110816
  Receipt Date: 20110811
  Transmission Date: 20111222
  Serious: Yes (Hospitalization)
  Sender: FDA-Public Use
  Company Number: JP-SANOFI-AVENTIS-2011SA051281

PATIENT

DRUGS (2)
  1. ASPIRIN [Concomitant]
     Indication: CEREBRAL INFARCTION
     Route: 048
  2. PLAVIX [Suspect]
     Route: 048
     Dates: start: 20110701, end: 20110701

REACTIONS (1)
  - RENAL FAILURE ACUTE [None]
